FAERS Safety Report 6184206-X (Version None)
Quarter: 2009Q2

REPORT INFORMATION
  Report Type: 
  Country: None (occurrence: None)
  Receive Date: 20090506
  Receipt Date: 20090423
  Transmission Date: 20091009
  Serious: Yes (Hospitalization)
  Sender: FDA-Public Use
  Company Number: PAR_02948_2009

PATIENT
  Age: 42 Year
  Sex: Female

DRUGS (7)
  1. TETRACYCLINE [Suspect]
     Indication: ANTIBIOTIC THERAPY
     Dosage: 250 MG QID
  2. METOPROLOL [Concomitant]
  3. HYDROCHLOROTHIAZIDE [Concomitant]
  4. CYPROHEPTADINE HCL [Concomitant]
  5. PENICILLIN G POTASSIUM [Concomitant]
  6. PROPOXYPHENE NAPSYLATE [Concomitant]
  7. ACETAMINOPHEN [Concomitant]

REACTIONS (14)
  - ABDOMINAL PAIN [None]
  - ACTIVATED PARTIAL THROMBOPLASTIN TIME PROLONGED [None]
  - BLOOD GLUCOSE INCREASED [None]
  - BLOOD PRESSURE INCREASED [None]
  - BODY TEMPERATURE INCREASED [None]
  - DIARRHOEA [None]
  - HAEMATOCRIT DECREASED [None]
  - HAEMODIALYSIS [None]
  - HAEMOGLOBIN DECREASED [None]
  - HEART RATE INCREASED [None]
  - INTERNATIONAL NORMALISED RATIO INCREASED [None]
  - NAUSEA [None]
  - RENAL FAILURE CHRONIC [None]
  - WHITE BLOOD CELL COUNT INCREASED [None]
